FAERS Safety Report 25153896 (Version 1)
Quarter: 2025Q2

REPORT INFORMATION
  Report Type: Spontaneous
  Country: US (occurrence: US)
  Receive Date: 20250403
  Receipt Date: 20250403
  Transmission Date: 20250717
  Serious: No
  Sender: DR REDDYS
  Company Number: US-DRL-USA-USA/2025/03/004734

PATIENT
  Age: 32 Year
  Sex: Female

DRUGS (3)
  1. NEOSTIGMINE [Suspect]
     Active Substance: NEOSTIGMINE
     Indication: Post lumbar puncture syndrome
  2. ATROPINE [Suspect]
     Active Substance: ATROPINE
     Indication: Post lumbar puncture syndrome
  3. SODIUM CHLORIDE [Concomitant]
     Active Substance: SODIUM CHLORIDE
     Indication: Post lumbar puncture syndrome

REACTIONS (2)
  - Drug ineffective [Unknown]
  - Off label use [Unknown]
